FAERS Safety Report 4271339-8 (Version None)
Quarter: 2004Q1

REPORT INFORMATION
  Report Type: 
  Country: None (occurrence: None)
  Receive Date: 20040114
  Receipt Date: 20040114
  Transmission Date: 20041129
  Serious: Yes (Hospitalization)
  Sender: FDA-Public Use
  Company Number: None

PATIENT
  Age: 66 Year
  Sex: Female

DRUGS (2)
  1. TOPAMAX [Suspect]
     Indication: BIPOLAR DISORDER
     Dosage: SEE IMAGE
     Dates: start: 20031126
  2. TOPAMAX [Suspect]
     Indication: DEPRESSION
     Dosage: SEE IMAGE
     Dates: start: 20031126

REACTIONS (5)
  - BLOOD CREATININE INCREASED [None]
  - LETHARGY [None]
  - NEGLECT OF PERSONAL APPEARANCE [None]
  - THINKING ABNORMAL [None]
  - URINARY TRACT INFECTION [None]
